FAERS Safety Report 14499145 (Version 1)
Quarter: 2018Q1

REPORT INFORMATION
  Report Type: Spontaneous
  Country: US (occurrence: US)
  Receive Date: 20180207
  Receipt Date: 20180207
  Transmission Date: 20180509
  Serious: No
  Sender: FDA-Public Use
  Company Number: US-JAZZ-2017-US-000734

PATIENT

DRUGS (6)
  1. FENTANYL. [Suspect]
     Active Substance: FENTANYL
     Indication: PRODUCT USED FOR UNKNOWN INDICATION
     Dosage: 185.23 ?G, QD
     Route: 037
     Dates: start: 20130417
  2. BUPIVACAINE. [Suspect]
     Active Substance: BUPIVACAINE
     Dosage: 135 MG, QD
     Route: 037
     Dates: start: 20130521
  3. FENTANYL. [Suspect]
     Active Substance: FENTANYL
     Dosage: 195.12 ?G, QD
     Route: 037
     Dates: start: 20130521
  4. PRIALT [Suspect]
     Active Substance: ZICONOTIDE ACETATE
     Dosage: 0.641 ?G, QH
     Route: 037
     Dates: start: 20130521
  5. PRIALT [Suspect]
     Active Substance: ZICONOTIDE ACETATE
     Indication: PRODUCT USED FOR UNKNOWN INDICATION
     Dosage: 0.060 ?G, QH
     Route: 037
     Dates: start: 20130417
  6. BUPIVACAINE. [Suspect]
     Active Substance: BUPIVACAINE
     Indication: PRODUCT USED FOR UNKNOWN INDICATION
     Dosage: 4.875 MG, QD
     Route: 037
     Dates: start: 20130417

REACTIONS (1)
  - Implant site extravasation [Not Recovered/Not Resolved]
